FAERS Safety Report 6417962-3 (Version None)
Quarter: 2009Q4

REPORT INFORMATION
  Report Type: 
  Country: None (occurrence: None)
  Receive Date: 20091027
  Receipt Date: 20091001
  Transmission Date: 20100525
  Serious: Yes (Hospitalization, Other)
  Sender: FDA-Public Use
  Company Number: THYM-1001146

PATIENT
  Age: 44 Year
  Sex: Female
  Weight: 84.8 kg

DRUGS (9)
  1. THYMOGLOBULIN (ANTI-THYMOCYTE GLOBULIN (RABBIT)) POWDER  SOLUTION  INF [Suspect]
     Indication: APLASTIC ANAEMIA
     Dosage: 300 MG, QD, INTRAVENOUS
     Route: 042
     Dates: start: 20090723, end: 20090728
  2. ORAL CONTRACEPTIVE NOS (ORAL CONTRACEPTIVE NOS) [Concomitant]
  3. CYCLOSPORINE [Concomitant]
  4. FILGRASTIM (FILGRASTIM) [Concomitant]
  5. PREDNISONE TAB [Concomitant]
  6. ACYCLOVIR [Concomitant]
  7. MOXIFLOXACIN HCL [Concomitant]
  8. HYDROCHLOROTHIAZIDE [Concomitant]
  9. METOPROLOL (METOPROLOL) [Concomitant]

REACTIONS (5)
  - DRUG SPECIFIC ANTIBODY PRESENT [None]
  - PARAESTHESIA [None]
  - PARALYSIS [None]
  - SERUM SICKNESS [None]
  - SYNCOPE [None]
